FAERS Safety Report 12661076 (Version 3)
Quarter: 2017Q1

REPORT INFORMATION
  Report Type: Spontaneous
  Country: US (occurrence: US)
  Receive Date: 20160817
  Receipt Date: 20170216
  Transmission Date: 20170428
  Serious: No
  Sender: FDA-Public Use
  Company Number: US-RELYPSA-RLY2016000574

PATIENT
  Age: 49 Year
  Sex: Female

DRUGS (16)
  1. TRADJENTA [Concomitant]
     Active Substance: LINAGLIPTIN
  2. ASPIRIN                            /00002701/ [Concomitant]
     Active Substance: ASPIRIN
  3. AMLODIPINE [Concomitant]
     Active Substance: AMLODIPINE BESYLATE
  4. VELTASSA [Suspect]
     Active Substance: PATIROMER
     Indication: HYPERKALAEMIA
     Dosage: 8.4 G, QD
     Route: 048
     Dates: start: 20160427
  5. SPRINTEC [Concomitant]
     Active Substance: ETHINYL ESTRADIOL\NORGESTIMATE
  6. GLIPIZIDE. [Concomitant]
     Active Substance: GLIPIZIDE
  7. CARVEDILOL. [Concomitant]
     Active Substance: CARVEDILOL
  8. INSULIN [Concomitant]
     Active Substance: INSULIN NOS
  9. VALSARTAN. [Concomitant]
     Active Substance: VALSARTAN
  10. CYCLOSPORINE. [Concomitant]
     Active Substance: CYCLOSPORINE
  11. ALLOPURINOL. [Concomitant]
     Active Substance: ALLOPURINOL
  12. SODIUM BICARBONATE. [Concomitant]
     Active Substance: SODIUM BICARBONATE
  13. LEVOTHYROXINE. [Concomitant]
     Active Substance: LEVOTHYROXINE
  14. CRESTOR [Concomitant]
     Active Substance: ROSUVASTATIN CALCIUM
  15. FUROSEMIDE. [Concomitant]
     Active Substance: FUROSEMIDE
  16. FISH OIL [Concomitant]
     Active Substance: FISH OIL

REACTIONS (2)
  - Wrong technique in product usage process [Recovered/Resolved]
  - Dizziness [Recovered/Resolved]

NARRATIVE: CASE EVENT DATE: 20160427
